FAERS Safety Report 8820167 (Version 2)
Quarter: 2012Q4

REPORT INFORMATION
  Report Type: 
  Country: NL (occurrence: NL)
  Receive Date: 20121001
  Receipt Date: 20121114
  Transmission Date: 20130627
  Serious: Yes (Hospitalization)
  Sender: FDA-Public Use
  Company Number: NL-PFIZER INC-2012238864

PATIENT
  Age: 70 Year
  Sex: Female
  Weight: 84 kg

DRUGS (10)
  1. GENOTROPIN [Suspect]
     Dosage: 0.1 mg, cyclic
     Route: 058
     Dates: start: 20040921
  2. HYDROCORTISONE [Concomitant]
     Indication: ACTH DECREASED
     Dosage: UNK
     Dates: start: 19760601
  3. LEVOTHYROXINE [Concomitant]
     Indication: TSH DECREASED
     Dosage: 100 ug, 1x/day
     Dates: start: 19760601
  4. LEVOTHYROXINE [Concomitant]
     Indication: PRIMARY HYPOTHYROIDISM
  5. ASCAL CARDIO [Concomitant]
     Indication: PREVENTION
     Dosage: UNK
     Dates: start: 19930601
  6. MIXTARD [Concomitant]
     Indication: DIABETES MELLITUS
     Dosage: UNK
     Dates: start: 20000501
  7. DHEA [Concomitant]
     Indication: ACTH DECREASED
     Dosage: 100 mg, 1x/day
     Dates: start: 20040921
  8. PANTOPRAZOLE [Concomitant]
     Dosage: 40 mg, 1x/day
  9. CLOPIDOGREL [Concomitant]
     Dosage: 75 mg, 1x/day
  10. TILDIEM [Concomitant]
     Dosage: 200 mg, 1x/day

REACTIONS (1)
  - Gastroenteritis [Recovered/Resolved]
